FAERS Safety Report 6248267-1 (Version None)
Quarter: 2009Q2

REPORT INFORMATION
  Report Type: 
  Country: None (occurrence: None)
  Receive Date: 20090629
  Receipt Date: 20090615
  Transmission Date: 20091009
  Serious: Yes (Other)
  Sender: FDA-Public Use
  Company Number: PHHY2009JP24054

PATIENT

DRUGS (1)
  1. DIOVAN [Suspect]
     Dosage: UNK
     Route: 048

REACTIONS (2)
  - GASTRECTOMY [None]
  - NAUSEA [None]
